FAERS Safety Report 9520784 (Version 1)
Quarter: 2013Q3

REPORT INFORMATION
  Report Type: Report from Study
  Country: AU (occurrence: AU)
  Receive Date: 20130913
  Receipt Date: 20130913
  Transmission Date: 20140515
  Serious: Yes (Hospitalization)
  Sender: FDA-Public Use
  Company Number: AU-ROCHE-1273810

PATIENT
  Age: 55 Year
  Sex: Male

DRUGS (7)
  1. RANIBIZUMAB [Suspect]
     Indication: DIABETIC RETINAL OEDEMA
     Route: 050
     Dates: start: 20120223, end: 20120223
  2. METFORMIN [Concomitant]
     Route: 050
     Dates: start: 20130730, end: 20130730
  3. NOVOMIX [Concomitant]
  4. PROTAMINE [Concomitant]
  5. ASPIRIN [Concomitant]
  6. COVERSYL [Concomitant]
     Route: 065
     Dates: start: 201208
  7. LOSEC (AUSTRALIA) [Concomitant]

REACTIONS (2)
  - Cardiac failure congestive [Recovered/Resolved]
  - Sleep apnoea syndrome [Unknown]
